FAERS Safety Report 24595789 (Version 1)
Quarter: 2024Q4

REPORT INFORMATION
  Report Type: Report from Study
  Country: US (occurrence: US)
  Receive Date: 20241109
  Receipt Date: 20241109
  Transmission Date: 20250114
  Serious: Yes (Other)
  Sender: ROCHE
  Company Number: US-ROCHE-10000123291

PATIENT
  Sex: Male

DRUGS (18)
  1. ACTEMRA [Suspect]
     Active Substance: TOCILIZUMAB
     Indication: Rheumatoid arthritis
     Dosage: STRENGTH: 0.9 ML
     Route: 058
     Dates: start: 20210706
  2. METHOTREXATE SODIUM [Concomitant]
     Active Substance: METHOTREXATE SODIUM
     Route: 058
  3. PREDNISONE [Concomitant]
     Active Substance: PREDNISONE
     Dates: start: 20210526
  4. GABAPENTIN [Concomitant]
     Active Substance: GABAPENTIN
     Route: 048
  5. Vitamin D 50 MCG (2000 UT) Tablet [Concomitant]
     Dosage: 2000 UT
     Route: 048
  6. Profia 60 MG/ML Solution [Concomitant]
     Route: 058
  7. TYLENOL [Concomitant]
     Active Substance: ACETAMINOPHEN
     Route: 048
  8. VITAMINS [Concomitant]
     Active Substance: VITAMINS
     Route: 048
  9. PANTOPRAZOLE SODIUM [Concomitant]
     Active Substance: PANTOPRAZOLE SODIUM
     Dosage: TABLET DELAYED RELEASE
     Route: 048
  10. FOLIC ACID [Concomitant]
     Active Substance: FOLIC ACID
     Route: 048
  11. POTASSIUM [Concomitant]
     Active Substance: POTASSIUM
  12. PRAVASTATIN SODIUM [Concomitant]
     Active Substance: PRAVASTATIN SODIUM
     Route: 048
  13. FLOVENT HFA [Concomitant]
     Active Substance: FLUTICASONE PROPIONATE
     Dosage: 2 PUFFS INHALATION TWICE A DAY
  14. HERBALS\TURMERIC [Concomitant]
     Active Substance: HERBALS\TURMERIC
     Route: 048
  15. OSTEO BI FLEX [Concomitant]
  16. HYDROCHLOROTHIAZIDE\LOSARTAN POTASSIUM [Concomitant]
     Active Substance: HYDROCHLOROTHIAZIDE\LOSARTAN POTASSIUM
     Dosage: 50-12.5 MG
     Route: 048
  17. Verapamil HCI [Concomitant]
     Route: 048
  18. OTEZLA [Concomitant]
     Active Substance: APREMILAST

REACTIONS (2)
  - Deafness [Unknown]
  - Hypoacusis [Unknown]
